FAERS Safety Report 21449286 (Version 2)
Quarter: 2022Q4

REPORT INFORMATION
  Report Type: Report from Study
  Country: US (occurrence: US)
  Receive Date: 20221013
  Receipt Date: 20221025
  Transmission Date: 20230112
  Serious: No
  Sender: FDA-Public Use
  Company Number: US-ABBVIE-4140839

PATIENT
  Sex: Female
  Weight: 71.667 kg

DRUGS (2)
  1. DUOPA [Suspect]
     Active Substance: CARBIDOPA\LEVODOPA
     Indication: Product used for unknown indication
  2. DUOPA [Suspect]
     Active Substance: CARBIDOPA\LEVODOPA

REACTIONS (7)
  - Malaise [Unknown]
  - Device occlusion [Not Recovered/Not Resolved]
  - Therapeutic product effect decreased [Unknown]
  - Dyskinesia [Unknown]
  - Abdominal distension [Unknown]
  - Defaecation disorder [Unknown]
  - Drainage [Unknown]
